FAERS Safety Report 11658562 (Version 3)
Quarter: 2016Q2

REPORT INFORMATION
  Report Type: Report from Study
  Country: ZA (occurrence: ZA)
  Receive Date: 20151026
  Receipt Date: 20160530
  Transmission Date: 20160815
  Serious: Yes (Life-Threatening, Hospitalization)
  Sender: FDA-Public Use
  Company Number: ZA-ROCHE-1648551

PATIENT
  Age: 40 Year
  Sex: Female
  Weight: 55 kg

DRUGS (20)
  1. PANADO [Suspect]
     Active Substance: ACETAMINOPHEN
     Indication: NON-HODGKIN^S LYMPHOMA
     Dosage: 2 TABLETS 6 HOURLY
     Route: 048
     Dates: start: 20150414, end: 20150414
  2. RITUXIMAB [Suspect]
     Active Substance: RITUXIMAB
     Indication: NON-HODGKIN^S LYMPHOMA
     Dosage: X 1 DOSE
     Route: 042
     Dates: start: 20150414, end: 20150414
  3. CYCLOPHOSPHAMIDE. [Suspect]
     Active Substance: CYCLOPHOSPHAMIDE
     Indication: NON-HODGKIN^S LYMPHOMA
     Route: 042
     Dates: start: 20150414, end: 20150414
  4. VINCRISTINE [Suspect]
     Active Substance: VINCRISTINE
     Indication: NON-HODGKIN^S LYMPHOMA
     Route: 042
     Dates: start: 20150414, end: 20150414
  5. PYRIDOXINE [Concomitant]
     Active Substance: PYRIDOXINE
     Route: 048
     Dates: start: 20150325, end: 20150426
  6. SPECTRAPAIN [Concomitant]
     Dosage: 2 TABLETS 3 TIMES A DAY
     Route: 048
     Dates: start: 20150414
  7. PHENERGAN [Suspect]
     Active Substance: PROMETHAZINE HYDROCHLORIDE
     Indication: NON-HODGKIN^S LYMPHOMA
     Dosage: 25MG 3 TIMES A DAY
     Route: 048
     Dates: start: 20150414, end: 20150414
  8. RIFAFOUR [Concomitant]
     Active Substance: ETHAMBUTOL HYDROCHLORIDE\ISONIAZID\PYRAZINAMIDE\RIFAMYCIN
     Dosage: 4 TABLETS DAILY
     Route: 048
     Dates: start: 20150325, end: 20150426
  9. PREDNISONE. [Suspect]
     Active Substance: PREDNISONE
     Indication: NON-HODGKIN^S LYMPHOMA
     Dosage: 60MG ONCE DAILY FOR 7 DAYS
     Route: 048
     Dates: start: 20150414, end: 20150420
  10. ZOFRAN [Suspect]
     Active Substance: ONDANSETRON HYDROCHLORIDE
     Indication: NON-HODGKIN^S LYMPHOMA
     Route: 042
     Dates: start: 20150414, end: 20150414
  11. SOLU-CORTEF [Suspect]
     Active Substance: HYDROCORTISONE SODIUM SUCCINATE
     Indication: NON-HODGKIN^S LYMPHOMA
     Route: 042
     Dates: start: 20150414, end: 20150414
  12. D4T [Concomitant]
     Active Substance: STAVUDINE
     Route: 048
     Dates: start: 20150217
  13. LANZOR [Concomitant]
     Active Substance: LANSOPRAZOLE
     Route: 048
     Dates: start: 20150414
  14. 3TC [Concomitant]
     Active Substance: LAMIVUDINE
     Route: 048
     Dates: start: 20150217
  15. ADRIAMYCIN [Suspect]
     Active Substance: DOXORUBICIN HYDROCHLORIDE
     Indication: NON-HODGKIN^S LYMPHOMA
     Route: 042
     Dates: start: 20150414, end: 20150414
  16. ETOPOSIDE. [Suspect]
     Active Substance: ETOPOSIDE
     Indication: NON-HODGKIN^S LYMPHOMA
     Route: 042
     Dates: start: 20150414, end: 20150414
  17. ALLOPURINOL. [Concomitant]
     Active Substance: ALLOPURINOL
     Route: 048
     Dates: start: 20150325
  18. BACTRIM [Concomitant]
     Active Substance: SULFAMETHOXAZOLE\TRIMETHOPRIM
     Route: 048
     Dates: start: 20150414
  19. AUGMENTIN [Concomitant]
     Active Substance: AMOXICILLIN\CLAVULANATE POTASSIUM
     Route: 048
     Dates: start: 20150414, end: 20150419
  20. EFAVIRENZ [Concomitant]
     Active Substance: EFAVIRENZ
     Route: 048
     Dates: start: 20150217

REACTIONS (9)
  - Lymphopenia [Recovered/Resolved]
  - Hepatic function abnormal [Recovered/Resolved]
  - Gastroenteritis [Recovered/Resolved]
  - Deep vein thrombosis [Recovered/Resolved]
  - Neutropenic sepsis [Recovered/Resolved]
  - Leukopenia [Recovered/Resolved]
  - Anaemia [Recovered/Resolved]
  - Hypokalaemia [Unknown]
  - Neutropenia [Recovered/Resolved]

NARRATIVE: CASE EVENT DATE: 20150420
